FAERS Safety Report 19947354 (Version 1)
Quarter: 2021Q4

REPORT INFORMATION
  Report Type: Spontaneous
  Country: DE (occurrence: DE)
  Receive Date: 20211013
  Receipt Date: 20211013
  Transmission Date: 20220303
  Serious: Yes (Life-Threatening, Hospitalization)
  Sender: FDA-Public Use
  Company Number: DE-ASTRAZENECA-2021A032414

PATIENT
  Age: 57 Year
  Sex: Female

DRUGS (18)
  1. PACLITAXEL [Suspect]
     Active Substance: PACLITAXEL
     Indication: Ovarian cancer
     Dosage: 301 MG
     Route: 042
     Dates: start: 20201119, end: 20201119
  2. PACLITAXEL [Suspect]
     Active Substance: PACLITAXEL
     Dosage: 301 MG
     Route: 042
     Dates: start: 20210104, end: 20210104
  3. PACLITAXEL [Suspect]
     Active Substance: PACLITAXEL
     Dosage: 300 MG
     Route: 042
     Dates: start: 20210126, end: 20210126
  4. PACLITAXEL [Suspect]
     Active Substance: PACLITAXEL
     Dosage: 301 MG
     Route: 042
     Dates: start: 20201210, end: 20201210
  5. CARBOPLATIN [Suspect]
     Active Substance: CARBOPLATIN
     Indication: Ovarian cancer
     Dosage: 550 MG
     Route: 042
     Dates: start: 20201119, end: 20201119
  6. CARBOPLATIN [Suspect]
     Active Substance: CARBOPLATIN
     Dosage: 530 MG
     Route: 042
     Dates: start: 20201210, end: 20201210
  7. CARBOPLATIN [Suspect]
     Active Substance: CARBOPLATIN
     Dosage: 500 MG
     Route: 042
     Dates: start: 20210126, end: 20210126
  8. CARBOPLATIN [Suspect]
     Active Substance: CARBOPLATIN
     Dosage: 480 MG
     Route: 042
     Dates: start: 20210104, end: 20210104
  9. DURVALUMAB [Suspect]
     Active Substance: DURVALUMAB
     Indication: Ovarian cancer
     Dosage: 22 ML
     Route: 042
     Dates: start: 20201210, end: 20201210
  10. DURVALUMAB [Suspect]
     Active Substance: DURVALUMAB
     Dosage: 22 ML
     Route: 042
     Dates: start: 20210104, end: 20210104
  11. OLAPARIB [Suspect]
     Active Substance: OLAPARIB
     Indication: Ovarian cancer
     Route: 048
  12. GRANISETRON [Concomitant]
     Active Substance: GRANISETRON
     Indication: Prophylactic chemotherapy
     Dosage: 2 MG
     Route: 048
     Dates: start: 20201119
  13. LEVOTHYROXINE SODIUM\POTASSIUM IODIDE [Concomitant]
     Active Substance: LEVOTHYROXINE SODIUM\POTASSIUM IODIDE
     Indication: Hypothyroidism
     Dosage: 100 MCG
     Route: 048
     Dates: start: 1990
  14. DIMETHINDENE [Concomitant]
     Active Substance: DIMETHINDENE
     Indication: Prophylactic chemotherapy
     Dosage: 4 MG
     Route: 042
     Dates: start: 20201119
  15. DEXAMETHASONE [Concomitant]
     Active Substance: DEXAMETHASONE
     Indication: Prophylactic chemotherapy
     Dosage: 8 MG
     Route: 048
     Dates: start: 20201119
  16. BEVACIZUMAB [Concomitant]
     Active Substance: BEVACIZUMAB
     Indication: Ovarian cancer
     Dosage: 990 MG
     Route: 042
     Dates: start: 20210104, end: 20210104
  17. BEVACIZUMAB [Concomitant]
     Active Substance: BEVACIZUMAB
     Dosage: 975 MG
     Route: 042
     Dates: start: 20210126, end: 20210126
  18. BEVACIZUMAB [Concomitant]
     Active Substance: BEVACIZUMAB
     Dosage: 990 MG
     Route: 042
     Dates: start: 20201210, end: 20201210

REACTIONS (1)
  - Alanine aminotransferase increased [Not Recovered/Not Resolved]

NARRATIVE: CASE EVENT DATE: 20210202
